FAERS Safety Report 6829778-4 (Version None)
Quarter: 2010Q3

REPORT INFORMATION
  Report Type: 
  Country: None (occurrence: None)
  Receive Date: 20100709
  Receipt Date: 20080610
  Transmission Date: 20110219
  Serious: No
  Sender: FDA-Public Use
  Company Number: US-PFIZER INC-2007009380

PATIENT
  Sex: Female
  Weight: 73.48 kg

DRUGS (9)
  1. CHANTIX [Suspect]
     Indication: SMOKING CESSATION THERAPY
     Route: 048
     Dates: start: 20070101, end: 20070201
  2. ALTACE [Concomitant]
     Indication: HYPERTENSION
  3. TOPROL-XL [Concomitant]
     Indication: HYPERTENSION
  4. NEXIUM [Concomitant]
  5. CELEXA [Concomitant]
  6. VITAMINS [Concomitant]
  7. ALPRAZOLAM [Concomitant]
     Indication: ANXIETY
  8. ALL OTHER THERAPEUTIC PRODUCTS [Concomitant]
  9. AZOR [Concomitant]

REACTIONS (1)
  - NAUSEA [None]
